FAERS Safety Report 7999048-X (Version None)
Quarter: 2011Q4

REPORT INFORMATION
  Report Type: 
  Country: None (occurrence: None)
  Receive Date: 20111221
  Receipt Date: 20111215
  Transmission Date: 20120403
  Serious: Yes (Death, Other)
  Sender: FDA-Public Use
  Company Number: PHHY2011ES109926

PATIENT
  Age: 51 Year
  Sex: Male

DRUGS (2)
  1. CYCLOSPORINE [Suspect]
     Dosage: UNK UKN, UNK
  2. TACROLIMUS [Suspect]
     Dosage: UNK UKN, UNK

REACTIONS (6)
  - RED BLOOD CELL SCHISTOCYTES PRESENT [None]
  - HAEMOLYTIC URAEMIC SYNDROME [None]
  - RENAL FAILURE [None]
  - PNEUMONIA BACTERIAL [None]
  - BRONCHOPULMONARY ASPERGILLOSIS [None]
  - MICROANGIOPATHIC HAEMOLYTIC ANAEMIA [None]
